FAERS Safety Report 24133602 (Version 1)
Quarter: 2024Q3

REPORT INFORMATION
  Report Type: Spontaneous
  Country: US (occurrence: None)
  Receive Date: 20240724
  Receipt Date: 20240724
  Transmission Date: 20241017
  Serious: Yes (Other)
  Sender: Public
  Company Number: None

PATIENT
  Age: 42 Year
  Sex: Male
  Weight: 121.95 kg

DRUGS (7)
  1. BUPRENORPHINE\NALOXONE [Suspect]
     Active Substance: BUPRENORPHINE\NALOXONE
     Indication: Drug abuse
     Dosage: 3 TOT - TOTAL DAILY BUCCAL
     Route: 002
     Dates: start: 20231109
  2. BUPROPION [Concomitant]
     Active Substance: BUPROPION
  3. DULOXETINE [Concomitant]
     Active Substance: DULOXETINE
  4. GABAPENTIN [Concomitant]
     Active Substance: GABAPENTIN
  5. LISINOPRIL [Concomitant]
     Active Substance: LISINOPRIL
  6. PROPRANOLOL [Concomitant]
     Active Substance: PROPRANOLOL HYDROCHLORIDE
  7. TRAZODONE [Concomitant]
     Active Substance: TRAZODONE HYDROCHLORIDE

REACTIONS (3)
  - Dental caries [None]
  - Tooth fracture [None]
  - Tooth loss [None]

NARRATIVE: CASE EVENT DATE: 20240722
